FAERS Safety Report 21972481 (Version 2)
Quarter: 2023Q1

REPORT INFORMATION
  Report Type: Spontaneous
  Country: PL (occurrence: PL)
  Receive Date: 20230209
  Receipt Date: 20230220
  Transmission Date: 20230418
  Serious: Yes (Death)
  Sender: FDA-Public Use
  Company Number: PL-BAYER-2023P008378

PATIENT
  Sex: Female

DRUGS (1)
  1. EYLEA [Suspect]
     Active Substance: AFLIBERCEPT
     Indication: Muscle necrosis
     Dosage: 2 MG, ONCE, SOLUTION FOR INJECTION
     Dates: start: 20220902, end: 20220902

REACTIONS (1)
  - Death [Fatal]
